FAERS Safety Report 7942869-X (Version None)
Quarter: 2011Q4

REPORT INFORMATION
  Report Type: 
  Country: None (occurrence: None)
  Receive Date: 20111128
  Receipt Date: 20111117
  Transmission Date: 20120403
  Serious: Yes (Hospitalization)
  Sender: FDA-Public Use
  Company Number: CA-MERCK-1111USA02288

PATIENT
  Age: 63 Year
  Sex: Female

DRUGS (5)
  1. JANUMET [Suspect]
     Route: 048
  2. RAMIPRIL [Concomitant]
     Route: 065
  3. HYDROCHLOROTHIAZIDE [Concomitant]
     Route: 065
  4. VENLAFAXINE HYDROCHLORIDE [Concomitant]
     Route: 065
  5. ATORVASTATIN CALCIUM [Concomitant]
     Route: 065

REACTIONS (5)
  - NAUSEA [None]
  - MALAISE [None]
  - ABDOMINAL PAIN LOWER [None]
  - PANCREATITIS ACUTE [None]
  - ABDOMINAL PAIN UPPER [None]
